FAERS Safety Report 9474671 (Version 1)
Quarter: 2013Q3

REPORT INFORMATION
  Report Type: Spontaneous
  Country: DK (occurrence: FR)
  Receive Date: 20130823
  Receipt Date: 20130823
  Transmission Date: 20140515
  Serious: Yes (Other)
  Sender: FDA-Public Use
  Company Number: FR-FRI-1000048095

PATIENT
  Age: 35 Year
  Sex: Female

DRUGS (6)
  1. ESCITALOPRAM [Suspect]
     Dates: start: 2007, end: 200811
  2. ESCITALOPRAM [Suspect]
     Dosage: 15 MG
     Dates: start: 201210
  3. LAROXYL [Concomitant]
  4. RISPERIDONE [Concomitant]
  5. ALPRAZOLAM [Concomitant]
  6. ZOPICLONE [Concomitant]

REACTIONS (2)
  - Hypotonic urinary bladder [Not Recovered/Not Resolved]
  - Urinary incontinence [Not Recovered/Not Resolved]
